FAERS Safety Report 21401225 (Version 1)
Quarter: 2022Q4

REPORT INFORMATION
  Report Type: Spontaneous
  Country: US (occurrence: US)
  Receive Date: 20221003
  Receipt Date: 20221003
  Transmission Date: 20230113
  Serious: Yes (Hospitalization, Other)
  Sender: FDA-Public Use
  Company Number: US-IPCA LABORATORIES LIMITED-IPC-2022-US-001646

PATIENT

DRUGS (2)
  1. WARFARIN [Suspect]
     Active Substance: WARFARIN
     Indication: Product used for unknown indication
     Dosage: 100-200 MG (20-40 TABLETS)
     Route: 048
  2. SERTRALINE [Concomitant]
     Active Substance: SERTRALINE HYDROCHLORIDE
     Indication: Depression
     Dosage: 75 MILLIGRAM, QD
     Route: 065

REACTIONS (8)
  - Coagulopathy [Recovering/Resolving]
  - International normalised ratio increased [Recovering/Resolving]
  - Abdominal pain lower [Recovering/Resolving]
  - Diarrhoea [Recovering/Resolving]
  - Haematoma [Recovering/Resolving]
  - Toxicity to various agents [Recovering/Resolving]
  - Suicide attempt [Unknown]
  - Intentional overdose [Unknown]
